FAERS Safety Report 17306381 (Version 2)
Quarter: 2020Q1

REPORT INFORMATION
  Report Type: Report from Study
  Country: US (occurrence: US)
  Receive Date: 20200123
  Receipt Date: 20200128
  Transmission Date: 20200409
  Serious: No
  Sender: FDA-Public Use
  Company Number: US-ELI_LILLY_AND_COMPANY-US202001007188

PATIENT
  Age: 53 Year
  Sex: Female

DRUGS (2)
  1. BARICITINIB [Suspect]
     Active Substance: BARICITINIB
     Dosage: 2 MG, UNKNOWN
     Route: 048
     Dates: start: 20190115, end: 201912
  2. BARICITINIB [Suspect]
     Active Substance: BARICITINIB
     Indication: RHEUMATOID ARTHRITIS
     Dosage: 2 MG, UNKNOWN
     Route: 048
     Dates: start: 2018, end: 20191226

REACTIONS (1)
  - Latent tuberculosis [Recovering/Resolving]
